FAERS Safety Report 8983095 (Version 1)
Quarter: 2012Q4

REPORT INFORMATION
  Report Type: 
  Country: US (occurrence: US)
  Receive Date: 20121224
  Receipt Date: 20121224
  Transmission Date: 20130627
  Serious: Yes (Other)
  Sender: FDA-Public Use
  Company Number: US-UCBSA-073585

PATIENT
  Age: 45 Year
  Sex: Female

DRUGS (1)
  1. CIMZIA [Suspect]
     Indication: CROHN^S DISEASE
     Dosage: 200 MG
     Route: 058
     Dates: start: 20121024, end: 20121203

REACTIONS (1)
  - Psoriasis [Recovering/Resolving]
